FAERS Safety Report 6986795-1 (Version None)
Quarter: 2010Q3

REPORT INFORMATION
  Report Type: 
  Country: None (occurrence: None)
  Receive Date: 20100915
  Receipt Date: 20100901
  Transmission Date: 20110219
  Serious: Yes (Hospitalization)
  Sender: FDA-Public Use
  Company Number: SG-MYLANLABS-2010S1016113

PATIENT
  Age: 84 Year
  Sex: Female

DRUGS (1)
  1. METFORMIN [Suspect]
     Dosage: DOSAGE NOT STATED
     Route: 065

REACTIONS (5)
  - DRUG RASH WITH EOSINOPHILIA AND SYSTEMIC SYMPTOMS [None]
  - HEPATITIS [None]
  - PURPURA [None]
  - PYREXIA [None]
  - RENAL IMPAIRMENT [None]
